FAERS Safety Report 4992163-4 (Version None)
Quarter: 2006Q2

REPORT INFORMATION
  Report Type: 
  Country: None (occurrence: None)
  Receive Date: 20060504
  Receipt Date: 20060426
  Transmission Date: 20061013
  Serious: Yes (Death, Disabling)
  Sender: FDA-Public Use
  Company Number: JP-JNJFOC-20060200014

PATIENT
  Age: 85 Year
  Sex: Male

DRUGS (1)
  1. OFLOCET [Suspect]
     Indication: BRONCHITIS
     Route: 065
     Dates: start: 20060103, end: 20060117

REACTIONS (3)
  - CARDIOVASCULAR DISORDER [None]
  - FALL [None]
  - MYALGIA [None]
